FAERS Safety Report 18929668 (Version 1)
Quarter: 2021Q1

REPORT INFORMATION
  Report Type: Spontaneous
  Country: FR (occurrence: FR)
  Receive Date: 20210223
  Receipt Date: 20210223
  Transmission Date: 20210420
  Serious: Yes (Hospitalization)
  Sender: FDA-Public Use
  Company Number: NVSC2021FR035533

PATIENT
  Age: 53 Year
  Sex: Male
  Weight: 84 kg

DRUGS (4)
  1. RIFAMPICIN [Suspect]
     Active Substance: RIFAMPIN
     Indication: ARTHRITIS BACTERIAL
     Dosage: 900 MG,QD
     Route: 048
     Dates: start: 20201228, end: 20210128
  2. AMOXICILLIN SODIUM [Suspect]
     Active Substance: AMOXICILLIN SODIUM
     Indication: ARTHRITIS BACTERIAL
     Dosage: 6 G,QD
     Route: 048
     Dates: start: 20201228, end: 20210128
  3. LEVOFLOXACIN. [Suspect]
     Active Substance: LEVOFLOXACIN
     Indication: ARTHRITIS BACTERIAL
     Dosage: 750 MG,QD
     Route: 048
     Dates: start: 20201228, end: 20210128
  4. OPDIVO [Suspect]
     Active Substance: NIVOLUMAB
     Indication: METASTATIC MALIGNANT MELANOMA
     Dosage: 480 MG,4
     Route: 042
     Dates: start: 20201211, end: 20210122

REACTIONS (5)
  - Lipase increased [Not Recovered/Not Resolved]
  - Rash maculo-papular [Recovering/Resolving]
  - Cholestasis [Recovering/Resolving]
  - Influenza like illness [Recovering/Resolving]
  - Thrombocytopenia [Recovering/Resolving]

NARRATIVE: CASE EVENT DATE: 20210123
